FAERS Safety Report 11533448 (Version 2)
Quarter: 2015Q4

REPORT INFORMATION
  Report Type: Spontaneous
  Country: US (occurrence: US)
  Receive Date: 20150921
  Receipt Date: 20151028
  Transmission Date: 20160304
  Serious: Yes (Hospitalization, Other)
  Sender: FDA-Public Use
  Company Number: US-GILEAD-2015-0171956

PATIENT
  Age: 71 Year
  Sex: Male

DRUGS (1)
  1. STRIBILD [Suspect]
     Active Substance: COBICISTAT\ELVITEGRAVIR\EMTRICITABINE\TENOFOVIR DISOPROXIL FUMARATE
     Indication: HIV INFECTION
     Dosage: UNK
     Route: 065
     Dates: start: 201309

REACTIONS (7)
  - Dyspnoea [Unknown]
  - Lipodystrophy acquired [Unknown]
  - Activities of daily living impaired [Unknown]
  - CD4 lymphocytes decreased [Unknown]
  - Tendon rupture [Unknown]
  - Asthenia [Unknown]
  - Asthma [Unknown]

NARRATIVE: CASE EVENT DATE: 201309
